FAERS Safety Report 5445054-9 (Version None)
Quarter: 2007Q3

REPORT INFORMATION
  Report Type: 
  Country: None (occurrence: None)
  Receive Date: 20070906
  Receipt Date: 20070829
  Transmission Date: 20080115
  Serious: Yes (Death, Disabling)
  Sender: FDA-Public Use
  Company Number: US-PURDUE-USA_2007_0028973

PATIENT
  Sex: Male

DRUGS (1)
  1. OXYCONTIN [Suspect]
     Indication: BACK PAIN
     Dosage: UNK MG, UNK
     Route: 048
     Dates: start: 20030401, end: 20040701

REACTIONS (4)
  - ANXIETY [None]
  - DISABILITY [None]
  - MULTIPLE DRUG OVERDOSE [None]
  - PAIN [None]
